FAERS Safety Report 12920492 (Version 2)
Quarter: 2016Q4

REPORT INFORMATION
  Report Type: Spontaneous
  Country: JP (occurrence: JP)
  Receive Date: 20161108
  Receipt Date: 20161115
  Transmission Date: 20170207
  Serious: Yes (Other)
  Sender: FDA-Public Use
  Company Number: PHJP2016JP031809

PATIENT
  Age: 78 Year
  Sex: Female

DRUGS (1)
  1. NEORAL [Suspect]
     Active Substance: CYCLOSPORINE
     Indication: DERMATITIS EXFOLIATIVE
     Dosage: 100 MG, QD (IN THE MORNING)
     Route: 048

REACTIONS (3)
  - Product use issue [Unknown]
  - Aortic dissection [Recovered/Resolved]
  - Hypophagia [Not Recovered/Not Resolved]
